FAERS Safety Report 5755045-6 (Version None)
Quarter: 2008Q2

REPORT INFORMATION
  Report Type: 
  Country: None (occurrence: None)
  Receive Date: 20080527
  Receipt Date: 20080509
  Transmission Date: 20081010
  Serious: Yes (Hospitalization, Other)
  Sender: FDA-Public Use
  Company Number: 230228J08USA

PATIENT
  Age: 85 Year
  Sex: Male
  Weight: 68.0396 kg

DRUGS (4)
  1. REBIF [Suspect]
     Indication: MULTIPLE SCLEROSIS
     Dosage: 44 MCG, 3 IN 1 WEEKS, SUBCUTANEOUS
     Route: 058
     Dates: start: 20071108
  2. MECLIZINE [Concomitant]
  3. DARVOCET [Concomitant]
  4. TEGRETOL [Concomitant]

REACTIONS (5)
  - BLOOD POTASSIUM DECREASED [None]
  - FALL [None]
  - LOSS OF CONSCIOUSNESS [None]
  - MOBILITY DECREASED [None]
  - UNEVALUABLE EVENT [None]
